FAERS Safety Report 21755644 (Version 1)
Quarter: 2022Q4

REPORT INFORMATION
  Report Type: Report from Study
  Country: US (occurrence: US)
  Receive Date: 20221220
  Receipt Date: 20221220
  Transmission Date: 20230112
  Serious: Yes (Life-Threatening, Hospitalization, Other)
  Sender: FDA-Public Use
  Company Number: US-BRISTOL-MYERS SQUIBB COMPANY-2022-089980

PATIENT
  Age: 55 Year
  Sex: Male
  Weight: 101.8 kg

DRUGS (39)
  1. NIVOLUMAB [Suspect]
     Active Substance: NIVOLUMAB
     Indication: Prostate cancer
     Dates: start: 20220518
  2. NIVOLUMAB [Suspect]
     Active Substance: NIVOLUMAB
     Dosage: LAST DOSE PRIOR TO SAE
     Dates: start: 20220720, end: 20220808
  3. IPILIMUMAB [Suspect]
     Active Substance: IPILIMUMAB
     Indication: Prostate cancer
     Dates: start: 20220518
  4. IPILIMUMAB [Suspect]
     Active Substance: IPILIMUMAB
     Dosage: LAST DOSE PRIOR TO SAE
     Dates: start: 20220720, end: 20220808
  5. NORVASC [Concomitant]
     Active Substance: AMLODIPINE BESYLATE
     Indication: Product used for unknown indication
     Route: 048
  6. ASPIRIN [Concomitant]
     Active Substance: ASPIRIN
     Indication: Product used for unknown indication
     Route: 048
  7. LIPITOR [Concomitant]
     Active Substance: ATORVASTATIN CALCIUM
     Indication: Product used for unknown indication
     Route: 048
  8. OSCAL [Concomitant]
     Active Substance: CALCIUM CARBONATE
     Indication: Product used for unknown indication
     Dosage: 600 MG
     Route: 048
  9. VITAMIN D3 [Concomitant]
     Active Substance: CHOLECALCIFEROL
     Indication: Product used for unknown indication
     Dosage: 5,000 UNITS TAB TABLET, TAKE 10,000 UNITS
     Route: 048
  10. FLEXERIL [Concomitant]
     Active Substance: CYCLOBENZAPRINE HYDROCHLORIDE
     Indication: Muscle spasms
     Route: 048
  11. XGEVA [Concomitant]
     Active Substance: DENOSUMAB
     Indication: Product used for unknown indication
     Dosage: INJECT 1 DOSE UNDER THE SKIN EVERY 4 (FOUR) MONTHS.  LAST DOSE-11/21
     Route: 058
  12. VALIUM [Concomitant]
     Active Substance: DIAZEPAM
     Indication: Product used for unknown indication
     Dosage: TAKE 1 TABLET ONE HOUR BEFORE MRI, IF NO RELIEF IN ONE HOUR TAKE THE 2ND TABET
     Route: 048
  13. DICLOFENAC [Concomitant]
     Active Substance: DICLOFENAC
     Indication: Pain
     Dosage: APPLY 2 GRAMS TOPICALLY 3 (THREE) TIMES A DAY AS NEEDED (MODERATE PAIN)
     Route: 061
  14. OMEGA 3 FISH OIL [FISH OIL] [Concomitant]
     Indication: Product used for unknown indication
     Dosage: 300-1,000 MG CAPSULE
     Route: 048
  15. LUPRON DEPOT [Concomitant]
     Active Substance: LEUPROLIDE ACETATE
     Indication: Product used for unknown indication
     Dosage: INJECT 30 MG INTO THE SHOULDER, THIGH, OR BUTTOCKS EVERY 4 (FOUR) MONTHS.  LAST DOSE 11/2021
  16. SYNTHROID [Concomitant]
     Active Substance: LEVOTHYROXINE SODIUM
     Indication: Product used for unknown indication
     Dosage: TAKE 1 TABLET PO DAILY MONDAY-SATURDAY, SKIP SUNDAY
     Route: 048
  17. EMLA [Concomitant]
     Active Substance: LIDOCAINE\PRILOCAINE
     Indication: Product used for unknown indication
     Dosage: 2.5-2.5% CREAM, APPLY 2.5 APPLICATION TOPICALLY TO AFFECTED AREA
     Route: 061
  18. PRINIVIL [Concomitant]
     Active Substance: LISINOPRIL
     Indication: Product used for unknown indication
     Dosage: EVERY MORNING
     Route: 048
  19. ZESTRIL [Concomitant]
     Active Substance: LISINOPRIL
     Indication: Product used for unknown indication
     Dosage: EVERY MORNING
     Route: 048
  20. ATIVAN [Concomitant]
     Active Substance: LORAZEPAM
     Indication: Product used for unknown indication
     Route: 048
  21. LOPRESSOR [Concomitant]
     Active Substance: METOPROLOL TARTRATE
     Indication: Product used for unknown indication
     Route: 048
  22. NITROSTAT [Concomitant]
     Active Substance: NITROGLYCERIN
     Indication: Product used for unknown indication
     Dosage: 0.4 MG UNDER THE TONGUE EVERY 5 (FIVE) MINUTES AS NEEDED
     Route: 060
  23. LOVAZA [Concomitant]
     Active Substance: OMEGA-3-ACID ETHYL ESTERS
     Indication: Product used for unknown indication
     Route: 048
  24. ZOFRAN [Concomitant]
     Active Substance: ONDANSETRON HYDROCHLORIDE
     Indication: Product used for unknown indication
     Dosage: TAKE 8 MG BY MOUTH
     Route: 048
  25. PROTONIX [Concomitant]
     Active Substance: PANTOPRAZOLE SODIUM
     Indication: Product used for unknown indication
     Dosage: TAKE 40 MG BY MOUTH DAILY WITH BREAKFAST.
     Route: 048
  26. PREVIDENT [Concomitant]
     Active Substance: SODIUM FLUORIDE
     Indication: Product used for unknown indication
     Dosage: 5000 DRY MOUTH 1.1 % DENTAL GEL,
  27. TRIDERM [TRIAMCINOLONE ACETONIDE] [Concomitant]
     Indication: Product used for unknown indication
     Route: 061
  28. VITAMIN B COMPLEX [NICOTINAMIDE;PANTOTHENATE SODIUM;PYRIDOXINE HYDROCH [Concomitant]
     Indication: Product used for unknown indication
     Route: 048
  29. LEUPROLIDE ACETATE [Concomitant]
     Active Substance: LEUPROLIDE ACETATE
     Indication: Product used for unknown indication
     Dates: start: 20211124
  30. DENOSUMAB [Concomitant]
     Active Substance: DENOSUMAB
     Indication: Prophylaxis
     Dates: start: 20211124
  31. BICALUTAMIDE [Concomitant]
     Active Substance: BICALUTAMIDE
     Indication: Cancer hormonal therapy
     Dates: start: 201104
  32. LEUPROLIDE ACETATE [Concomitant]
     Active Substance: LEUPROLIDE ACETATE
     Indication: Cancer hormonal therapy
     Dates: start: 201104
  33. PREDNISONE [Concomitant]
     Active Substance: PREDNISONE
     Indication: Osteoarthritis
  34. CEFTRIAXONE [Concomitant]
     Active Substance: CEFTRIAXONE
     Indication: Pneumonia
     Route: 042
  35. DIPHENHYDRAMINE [Concomitant]
     Active Substance: DIPHENHYDRAMINE
     Indication: Product used for unknown indication
     Route: 042
  36. DOXYCYCLINE [Concomitant]
     Active Substance: DOXYCYCLINE
     Indication: Product used for unknown indication
     Route: 042
  37. HEPARIN [Concomitant]
     Active Substance: HEPARIN SODIUM
     Indication: Product used for unknown indication
     Dosage: PRN
  38. SODIUM CHLORIDE [Concomitant]
     Active Substance: SODIUM CHLORIDE
     Indication: Prostate cancer
     Dosage: NIVOLUMAB 103 MG IN SODIUM CHLORIDE 0.9% (NS) 50 ML IVPB, INTRAVENOUS, 2 OF  3 CYCLES
     Route: 042
     Dates: start: 20220518, end: 20220829
  39. SODIUM CHLORIDE [Concomitant]
     Active Substance: SODIUM CHLORIDE
     Dosage: IPILIMUMAB 513 MG IN SODIUM  CHLORIDE 0.9% (NS) 513 ML IVPB, INTRAVENOUS, 2 OF  2 CYCLES
     Route: 042
     Dates: start: 20220518, end: 20220829

REACTIONS (1)
  - Immune-mediated hepatitis [Recovered/Resolved]

NARRATIVE: CASE EVENT DATE: 20220808
